FAERS Safety Report 5729628-3 (Version None)
Quarter: 2008Q2

REPORT INFORMATION
  Report Type: 
  Country: None (occurrence: None)
  Receive Date: 20080501
  Receipt Date: 20080422
  Transmission Date: 20081010
  Serious: Yes (Death, Hospitalization)
  Sender: FDA-Public Use
  Company Number: 2008SP006928

PATIENT
  Age: 65 Year
  Sex: Female

DRUGS (5)
  1. TEMODAL [Suspect]
     Indication: GLIOBLASTOMA
     Dosage: 130 MG; QD; PO
     Route: 048
     Dates: start: 20080313, end: 20080407
  2. FORTECORTIN /00016001/ [Concomitant]
  3. FORTECORTIN /00016001/ [Concomitant]
  4. PANTOZOL /01263202/ [Concomitant]
  5. DIFLUCAN SOLUTION [Concomitant]

REACTIONS (6)
  - CARDIOVASCULAR DISORDER [None]
  - GASTROINTESTINAL HAEMORRHAGE [None]
  - INFLAMMATION [None]
  - OESOPHAGITIS ULCERATIVE [None]
  - PANCYTOPENIA [None]
  - SEPSIS [None]
